FAERS Safety Report 11814860 (Version 3)
Quarter: 2019Q4

REPORT INFORMATION
  Report Type: Spontaneous
  Country: US (occurrence: US)
  Receive Date: 20151209
  Receipt Date: 20191031
  Transmission Date: 20200122
  Serious: Yes (Other)
  Sender: FDA-Public Use
  Company Number: US-SA-2015SA133246

PATIENT
  Age: 75 Year
  Sex: Female
  Weight: 81.63 kg

DRUGS (5)
  1. TOUJEO [Suspect]
     Active Substance: INSULIN GLARGINE
     Dosage: 38 U, HS
     Route: 065
  2. TOUJEO [Suspect]
     Active Substance: INSULIN GLARGINE
     Dosage: INCREASING 2U EVERY 3-4 DAYS
     Route: 065
  3. BYDUREON [Concomitant]
     Active Substance: EXENATIDE
     Dosage: UNK UNK,QW
  4. TOUJEO [Suspect]
     Active Substance: INSULIN GLARGINE
     Indication: TYPE 2 DIABETES MELLITUS
     Dosage: 20 U, QD
     Dates: start: 2015
  5. NOVOLOG [Concomitant]
     Active Substance: INSULIN ASPART
     Dosage: UNK (SEVERAL TIMES A DAY)

REACTIONS (10)
  - Diabetes mellitus inadequate control [Unknown]
  - Product storage error [Unknown]
  - Multiple use of single-use product [Unknown]
  - Neoplasm malignant [Unknown]
  - Weight decreased [Unknown]
  - Eye disorder [Unknown]
  - Blood glucose decreased [Unknown]
  - Anxiety [Unknown]
  - Feeling abnormal [Unknown]
  - Product dose omission [Unknown]
